FAERS Safety Report 12477099 (Version 1)
Quarter: 2016Q2

REPORT INFORMATION
  Report Type: Spontaneous
  Country: US (occurrence: US)
  Receive Date: 20160617
  Receipt Date: 20160617
  Transmission Date: 20160815
  Serious: Yes (Hospitalization, Other)
  Sender: FDA-Public Use
  Company Number: US-ALLERGAN-1658437US

PATIENT
  Age: 46 Year
  Sex: Female

DRUGS (2)
  1. VIBERZI [Suspect]
     Active Substance: ELUXADOLINE
     Indication: ABDOMINAL PAIN
     Dosage: 75 MG, BID
     Route: 048
     Dates: start: 201605, end: 201605
  2. VIBERZI [Suspect]
     Active Substance: ELUXADOLINE
     Indication: DIARRHOEA

REACTIONS (4)
  - Sphincter of Oddi dysfunction [Unknown]
  - Vomiting [Unknown]
  - Abdominal pain upper [Unknown]
  - Lipase increased [Unknown]

NARRATIVE: CASE EVENT DATE: 201605
